FAERS Safety Report 5700548-3 (Version None)
Quarter: 2008Q2

REPORT INFORMATION
  Report Type: 
  Country: None (occurrence: None)
  Receive Date: 20080410
  Receipt Date: 20080402
  Transmission Date: 20081010
  Serious: Yes (Other)
  Sender: FDA-Public Use
  Company Number: GB-PFIZER INC-2008030344

PATIENT
  Age: 48 Year
  Sex: Female
  Weight: 64 kg

DRUGS (2)
  1. CHAMPIX [Suspect]
     Indication: SMOKING CESSATION THERAPY
     Route: 048
     Dates: start: 20071219, end: 20080120
  2. ELLESTE-DUET [Concomitant]
     Route: 048

REACTIONS (3)
  - ABNORMAL DREAMS [None]
  - DEPRESSION [None]
  - SLEEP DISORDER [None]
